FAERS Safety Report 5304535-9 (Version None)
Quarter: 2007Q2

REPORT INFORMATION
  Report Type: 
  Country: None (occurrence: None)
  Receive Date: 20070423
  Receipt Date: 20070412
  Transmission Date: 20071010
  Serious: Yes (Other)
  Sender: FDA-Public Use
  Company Number: US-AMGEN-US219682

PATIENT
  Sex: Female

DRUGS (12)
  1. PROCRIT [Suspect]
     Indication: ANAEMIA
     Route: 065
     Dates: start: 20051112
  2. PROTONIX [Concomitant]
     Route: 065
  3. SELENIUM SULFIDE [Concomitant]
     Route: 065
  4. REGLAN [Concomitant]
     Route: 065
  5. ASPIRIN [Concomitant]
     Route: 065
  6. FERROUS GLUCONATE [Concomitant]
     Route: 065
  7. VITAMIN B-12 [Concomitant]
     Route: 065
  8. ASCORBIC ACID [Concomitant]
     Route: 065
  9. PROZAC [Concomitant]
     Route: 065
  10. AVANDIA [Concomitant]
     Route: 065
  11. VYTORIN [Concomitant]
     Route: 065
  12. ALTACE [Concomitant]
     Route: 065

REACTIONS (1)
  - BIOPSY BREAST ABNORMAL [None]
